FAERS Safety Report 9331842 (Version 1)
Quarter: 2013Q2

REPORT INFORMATION
  Report Type: Spontaneous
  Country: JP (occurrence: US)
  Receive Date: 20130605
  Receipt Date: 20130605
  Transmission Date: 20140414
  Serious: No
  Sender: FDA-Public Use
  Company Number: JP-ALEXION-A201301157

PATIENT
  Age: 55 Year
  Sex: Female

DRUGS (6)
  1. SOLIRIS 300MG [Suspect]
     Indication: PAROXYSMAL NOCTURNAL HAEMOGLOBINURIA
     Dosage: 900 MG, Q2W
     Route: 042
  2. PREDONINE [Concomitant]
     Dosage: 2 MG, QD
     Dates: start: 20101202
  3. FERROMIA [Concomitant]
     Dosage: 50 MG, PRN
  4. FOLIAMIN [Concomitant]
     Dosage: 150 MG, UNK
  5. BEZATOL [Concomitant]
     Dosage: 400 MG, QD
     Dates: start: 1998
  6. CALONAL [Concomitant]
     Dosage: 400 MG, QD
     Dates: start: 20121227

REACTIONS (1)
  - Nasopharyngitis [Recovered/Resolved]
